FAERS Safety Report 9164985 (Version 2)
Quarter: 2013Q2

REPORT INFORMATION
  Report Type: Spontaneous
  Country: US (occurrence: US)
  Receive Date: 20130315
  Receipt Date: 20130613
  Transmission Date: 20140414
  Serious: Yes (Other)
  Sender: FDA-Public Use
  Company Number: US-BAYER-2013-030712

PATIENT
  Age: 43 Year
  Sex: Female
  Weight: 82.09 kg

DRUGS (16)
  1. YAZ [Suspect]
  2. YASMIN [Suspect]
  3. GIANVI [Suspect]
  4. TOPIRAMATE [Concomitant]
     Dosage: UNK
     Dates: start: 20120518
  5. VENLAFAXINE [Concomitant]
     Dosage: UNK
     Dates: start: 20120518
  6. FAMOTIDINE [Concomitant]
     Dosage: UNK
     Dates: start: 20120516
  7. PREDNISONE [Concomitant]
     Dosage: UNK
     Dates: start: 20120516
  8. SINGULAIR [Concomitant]
     Dosage: UNK
     Dates: start: 20120507
  9. NEXIUM [Concomitant]
  10. FIORICET [Concomitant]
  11. QVAR [Concomitant]
  12. ZYRTEC [CETIRIZINE HYDROCHLORIDE] [Concomitant]
  13. DEPO PROVERA [Concomitant]
  14. EPIPEN [Concomitant]
  15. TOPAMAX [Concomitant]
  16. EFFEXOR [Concomitant]

REACTIONS (2)
  - Deep vein thrombosis [Recovered/Resolved]
  - Cholelithiasis [None]
